FAERS Safety Report 17133228 (Version 1)
Quarter: 2019Q4

REPORT INFORMATION
  Report Type: Spontaneous
  Country: US (occurrence: US)
  Receive Date: 20191210
  Receipt Date: 20191210
  Transmission Date: 20200122
  Serious: Yes (Other)
  Sender: FDA-Public Use
  Company Number: US-TEVA-2019-US-1149682

PATIENT
  Age: 2 Year
  Sex: Male

DRUGS (8)
  1. CIMETIDINE [Suspect]
     Active Substance: CIMETIDINE
     Indication: SKIN PAPILLOMA
     Route: 048
  2. IMIQUIMOD. [Suspect]
     Active Substance: IMIQUIMOD
     Indication: ANOGENITAL WARTS
  3. SINECATECHINS [Suspect]
     Active Substance: SINECATECHINS
     Indication: SKIN PAPILLOMA
     Dosage: APPLIED TWICE DAILY
     Route: 061
  4. IMIQUIMOD. [Suspect]
     Active Substance: IMIQUIMOD
     Indication: SKIN PAPILLOMA
     Dosage: APPLIED THRICE WEEKLY
     Route: 061
  5. CIMETIDINE [Suspect]
     Active Substance: CIMETIDINE
     Indication: ANOGENITAL WARTS
  6. CANDIDA ANTIGEN [Suspect]
     Active Substance: INVESTIGATIONAL PRODUCT
     Indication: ANOGENITAL WARTS
  7. SINECATECHINS [Suspect]
     Active Substance: SINECATECHINS
     Indication: ANOGENITAL WARTS
  8. CANDIDA ANTIGEN [Suspect]
     Active Substance: INVESTIGATIONAL PRODUCT
     Indication: SKIN PAPILLOMA
     Route: 065

REACTIONS (3)
  - Haemorrhage [Unknown]
  - Therapy non-responder [Unknown]
  - Pain [Unknown]
